FAERS Safety Report 9399539 (Version 1)
Quarter: 2013Q3

REPORT INFORMATION
  Report Type: Spontaneous
  Country: CN (occurrence: None)
  Receive Date: 20130710
  Receipt Date: 20130710
  Transmission Date: 20140515
  Serious: Yes (Other)
  Sender: FDA-Public Use
  Company Number: FK201302397

PATIENT
  Age: 65 Year
  Sex: Female

DRUGS (2)
  1. INTRALIPID [Suspect]
     Indication: CHOLELITHIASIS
     Dosage: (NOT OTHERWISE SPECIFIED)
     Route: 042
     Dates: start: 20120704, end: 20120704
  2. NOVAMIN [Suspect]
     Indication: CHOLELITHIASIS
     Dosage: (NOT OTHERWISE SPECIFIED)
     Route: 042
     Dates: start: 20120704, end: 20120704

REACTIONS (4)
  - Palpitations [None]
  - Abdominal distension [None]
  - Chest discomfort [None]
  - Infusion related reaction [None]
